FAERS Safety Report 9436636 (Version 2)
Quarter: 2013Q3

REPORT INFORMATION
  Report Type: Spontaneous
  Country: FR (occurrence: FR)
  Receive Date: 20130802
  Receipt Date: 20130816
  Transmission Date: 20140515
  Serious: Yes (Hospitalization)
  Sender: FDA-Public Use
  Company Number: FR-009507513-1307FRA012393

PATIENT
  Age: 74 Year
  Sex: Female

DRUGS (6)
  1. SINEMET 100 MG / 10 MG COMPRIME SECABLE [Suspect]
     Dosage: 2 DF, ONCE
     Route: 048
     Dates: start: 20130331, end: 20130331
  2. SINEMET L.P. [Suspect]
     Dosage: 1 DF, ONCE
     Route: 048
     Dates: start: 20130331, end: 20130331
  3. CLOZAPINE [Suspect]
     Dosage: 3 DF, PRN
     Route: 048
     Dates: start: 20130331, end: 20130331
  4. MIRTAZAPINE [Suspect]
     Dosage: 1.5 DF, ONCE
     Route: 048
     Dates: start: 20130331, end: 20130331
  5. SERESTA [Suspect]
     Dosage: 2 DF, ONCE
     Route: 048
     Dates: start: 20130331, end: 20130331
  6. DOMPERIDONE [Suspect]
     Dosage: 1 DF, PRN
     Route: 048
     Dates: start: 20130331, end: 20130331

REACTIONS (3)
  - Drug administration error [Recovered/Resolved]
  - Somnolence [Recovered/Resolved]
  - Respiratory depression [Recovered/Resolved]
